APPROVED DRUG PRODUCT: METHAMPHETAMINE HYDROCHLORIDE
Active Ingredient: METHAMPHETAMINE HYDROCHLORIDE
Strength: 5MG
Dosage Form/Route: TABLET;ORAL
Application: A203846 | Product #001 | TE Code: AA
Applicant: HIKMA PHARMACEUTICALS USA INC
Approved: Nov 17, 2015 | RLD: No | RS: No | Type: RX